FAERS Safety Report 10607816 (Version 3)
Quarter: 2015Q1

REPORT INFORMATION
  Report Type: Spontaneous
  Country: IT (occurrence: IT)
  Receive Date: 20141125
  Receipt Date: 20150220
  Transmission Date: 20150720
  Serious: Yes (Other)
  Sender: FDA-Public Use
  Company Number: IT-TEVA-523460ISR

PATIENT
  Age: 54 Year
  Sex: Male

DRUGS (4)
  1. TRANQUIRIT 0.5 % [Suspect]
     Active Substance: DIAZEPAM
     Route: 048
  2. LORAZPEAM DOROM [Suspect]
     Active Substance: LORAZEPAM
     Dosage: 75 GTT DAILY;
     Route: 048
  3. TRANQUIRIT 0.5 % [Suspect]
     Active Substance: DIAZEPAM
     Indication: ANXIETY
     Dosage: 75 GTT DAILY;
     Route: 048
  4. LORAZPEAM DOROM [Suspect]
     Active Substance: LORAZEPAM
     Indication: ANXIETY
     Dosage: 60 GTT DAILY;
     Route: 048

REACTIONS (5)
  - Drug abuse [Recovering/Resolving]
  - Joint injury [Recovering/Resolving]
  - Loss of consciousness [Recovering/Resolving]
  - Presyncope [Recovering/Resolving]
  - Drop attacks [Recovering/Resolving]

NARRATIVE: CASE EVENT DATE: 20141006
